FAERS Safety Report 4684116-0 (Version None)
Quarter: 2005Q2

REPORT INFORMATION
  Report Type: 
  Country: None (occurrence: None)
  Receive Date: 20050607
  Receipt Date: 20050601
  Transmission Date: 20051028
  Serious: Yes (Other)
  Sender: FDA-Public Use
  Company Number: US-BRISTOL-MYERS SQUIBB COMPANY-12990651

PATIENT
  Sex: Female

DRUGS (4)
  1. ESTRACE [Suspect]
     Indication: HORMONE REPLACEMENT THERAPY
     Dates: start: 20020101, end: 20030101
  2. PREMARIN [Suspect]
     Indication: MENSTRUATION IRREGULAR
     Dates: start: 19980101, end: 20000101
  3. PREMPRO (PREMARIN;CYCRIN 14/14) [Suspect]
     Indication: MENSTRUATION IRREGULAR
     Dates: start: 19970101, end: 20020101
  4. ESTRATEST [Suspect]
     Indication: MENSTRUATION IRREGULAR
     Dates: start: 20000101, end: 20010101

REACTIONS (1)
  - BREAST CANCER [None]
